FAERS Safety Report 21635433 (Version 4)
Quarter: 2022Q4

REPORT INFORMATION
  Report Type: Spontaneous
  Country: US (occurrence: US)
  Receive Date: 20221123
  Receipt Date: 20221228
  Transmission Date: 20230113
  Serious: Yes (Hospitalization, Other)
  Sender: FDA-Public Use
  Company Number: US-GILEAD-2022-0605781

PATIENT
  Age: 65 Year
  Sex: Male
  Weight: 76.6 kg

DRUGS (2)
  1. SACITUZUMAB GOVITECAN-HZIY [Suspect]
     Active Substance: SACITUZUMAB GOVITECAN-HZIY
     Indication: Bladder cancer
     Dosage: 6 MG/KG, Q1WK
     Route: 042
     Dates: start: 20220304, end: 20221115
  2. ENFORTUMAB VEDOTIN [Suspect]
     Active Substance: ENFORTUMAB VEDOTIN
     Indication: Bladder cancer
     Dosage: 1 MG/KG, Q1WK
     Route: 042
     Dates: start: 20220304, end: 20221115

REACTIONS (2)
  - Small intestinal obstruction [Recovered/Resolved]
  - Pelvic abscess [Not Recovered/Not Resolved]

NARRATIVE: CASE EVENT DATE: 20221117
